FAERS Safety Report 17112851 (Version 1)
Quarter: 2019Q4

REPORT INFORMATION
  Report Type: Spontaneous
  Country: IT (occurrence: IT)
  Receive Date: 20191204
  Receipt Date: 20191204
  Transmission Date: 20200122
  Serious: Yes (Other)
  Sender: FDA-Public Use
  Company Number: IT-SA-2019SA333397

PATIENT
  Age: 18 Year
  Sex: Female

DRUGS (2)
  1. SALINE [SODIUM CHLORIDE] [Concomitant]
     Active Substance: SODIUM CHLORIDE
     Indication: IRON DEFICIENCY ANAEMIA
     Dosage: 500 (UNIT NOT REPORTED)
  2. FERLIXIT [Suspect]
     Active Substance: SODIUM FERRIC GLUCONATE COMPLEX
     Indication: IRON DEFICIENCY ANAEMIA
     Dosage: 125 MG, QD
     Route: 042

REACTIONS (11)
  - Cyanosis [Unknown]
  - Hypersensitivity [Unknown]
  - Pulmonary embolism [Unknown]
  - Tachycardia [Unknown]
  - Hypotension [Unknown]
  - Wheezing [Unknown]
  - Loss of consciousness [Unknown]
  - Dyspnoea [Unknown]
  - Hot flush [Unknown]
  - Chest discomfort [Unknown]
  - Stridor [Unknown]
